FAERS Safety Report 10444853 (Version 1)
Quarter: 2014Q3

REPORT INFORMATION
  Report Type: Spontaneous
  Country: US (occurrence: US)
  Receive Date: 20140910
  Receipt Date: 20140910
  Transmission Date: 20150326
  Serious: Yes (Hospitalization, Other)
  Sender: FDA-Public Use
  Company Number: US-ELI_LILLY_AND_COMPANY-US201408011205

PATIENT
  Sex: Female

DRUGS (2)
  1. LANTUS [Suspect]
     Active Substance: INSULIN GLARGINE
     Indication: PRODUCT USED FOR UNKNOWN INDICATION
     Dosage: UNK
     Route: 065
  2. HUMALOG [Suspect]
     Active Substance: INSULIN LISPRO
     Indication: TYPE 2 DIABETES MELLITUS
     Dosage: UNK
     Route: 065
     Dates: start: 2004

REACTIONS (6)
  - Wrong drug administered [Unknown]
  - Polymyalgia rheumatica [Not Recovered/Not Resolved]
  - Joint dislocation [Unknown]
  - Visual acuity reduced [Not Recovered/Not Resolved]
  - Injection site haemorrhage [Unknown]
  - Angina unstable [Unknown]

NARRATIVE: CASE EVENT DATE: 2011
